FAERS Safety Report 16559421 (Version 1)
Quarter: 2019Q3

REPORT INFORMATION
  Report Type: Report from Study
  Country: US (occurrence: US)
  Receive Date: 20190711
  Receipt Date: 20190711
  Transmission Date: 20191004
  Serious: Yes (Other)
  Sender: FDA-Public Use
  Company Number: US-ROCHE-2350254

PATIENT

DRUGS (3)
  1. VORINOSTAT [Suspect]
     Active Substance: VORINOSTAT
     Indication: B-CELL LYMPHOMA
     Route: 048
  2. RITUXIMAB. [Suspect]
     Active Substance: RITUXIMAB
     Indication: B-CELL LYMPHOMA
     Route: 042
  3. CLADRIBINE. [Suspect]
     Active Substance: CLADRIBINE
     Indication: B-CELL LYMPHOMA
     Route: 042

REACTIONS (48)
  - Hypokalaemia [Unknown]
  - Hypersensitivity [Unknown]
  - Atrial fibrillation [Unknown]
  - Diarrhoea [Unknown]
  - Pulmonary haemorrhage [Unknown]
  - Febrile neutropenia [Unknown]
  - Infection [Unknown]
  - Neuropathy peripheral [Unknown]
  - Appendicitis [Unknown]
  - Cachexia [Unknown]
  - Gastric haemorrhage [Unknown]
  - Mucosal inflammation [Unknown]
  - Syncope [Unknown]
  - Alanine aminotransferase increased [Unknown]
  - Infusion related reaction [Unknown]
  - Blood creatinine increased [Unknown]
  - International normalised ratio increased [Unknown]
  - Pain [Unknown]
  - Small intestinal obstruction [Unknown]
  - Thrombocytopenia [Unknown]
  - Cardiac failure congestive [Unknown]
  - Dizziness [Unknown]
  - Dyspnoea [Unknown]
  - Activated partial thromboplastin time prolonged [Unknown]
  - Gastritis [Unknown]
  - Hypercalcaemia [Unknown]
  - Aortic valve disease [Unknown]
  - Deep vein thrombosis [Unknown]
  - Headache [Unknown]
  - Pulmonary embolism [Unknown]
  - Metastasis [Unknown]
  - Troponin I increased [Unknown]
  - Angina pectoris [Unknown]
  - Anaemia [Unknown]
  - Hypoalbuminaemia [Unknown]
  - Hyponatraemia [Unknown]
  - Hypoxia [Unknown]
  - Aspartate aminotransferase increased [Unknown]
  - Hypophosphataemia [Unknown]
  - Hypotension [Unknown]
  - Pulmonary oedema [Unknown]
  - Weight decreased [Unknown]
  - Blood lactic acid increased [Unknown]
  - Fatigue [Unknown]
  - Hyperglycaemia [Unknown]
  - Hypocalcaemia [Unknown]
  - Neutropenia [Unknown]
  - Decreased appetite [Unknown]
